FAERS Safety Report 4900100-3 (Version None)
Quarter: 2006Q1

REPORT INFORMATION
  Report Type: 
  Country: None (occurrence: None)
  Receive Date: 20060131
  Receipt Date: 20060119
  Transmission Date: 20060701
  Serious: Yes (Other)
  Sender: FDA-Public Use
  Company Number: HQWYE442320JAN06

PATIENT
  Sex: Male
  Weight: 77.18 kg

DRUGS (1)
  1. TACROLIMUS, CONTROL FOR SIROLIMUS (TACROLIMUS, CONTROL FOR SIROLIMUS, [Suspect]
     Indication: PROPHYLAXIS AGAINST TRANSPLANT REJECTION
     Dosage: 7 MG 1X PER 1 DAY, ORAL
     Route: 048
     Dates: start: 20040409

REACTIONS (2)
  - ACTINIC KERATOSIS [None]
  - SQUAMOUS CELL CARCINOMA OF SKIN [None]
